FAERS Safety Report 15684334 (Version 1)
Quarter: 2018Q4

REPORT INFORMATION
  Report Type: Spontaneous
  Country: CN (occurrence: CN)
  Receive Date: 20181204
  Receipt Date: 20181204
  Transmission Date: 20190205
  Serious: Yes (Death)
  Sender: FDA-Public Use
  Company Number: CN-JNJFOC-20181130901

PATIENT

DRUGS (6)
  1. PIROXICAM. [Suspect]
     Active Substance: PIROXICAM
     Indication: BACK PAIN
     Route: 065
  2. IBUPROFEN. [Suspect]
     Active Substance: IBUPROFEN
     Indication: BACK PAIN
     Route: 065
  3. CHLORZOXAZONE. [Suspect]
     Active Substance: CHLORZOXAZONE
     Indication: ARTHRALGIA
     Route: 065
  4. PIROXICAM. [Suspect]
     Active Substance: PIROXICAM
     Indication: ARTHRALGIA
     Route: 065
  5. IBUPROFEN. [Suspect]
     Active Substance: IBUPROFEN
     Indication: ARTHRALGIA
     Route: 065
  6. CHLORZOXAZONE. [Suspect]
     Active Substance: CHLORZOXAZONE
     Indication: BACK PAIN
     Route: 065

REACTIONS (6)
  - Pulmonary oedema [Fatal]
  - Cardiac failure acute [Fatal]
  - Sepsis [Fatal]
  - Heart injury [Fatal]
  - Drug hypersensitivity [Fatal]
  - Renal disorder [Fatal]
